FAERS Safety Report 5113808-4 (Version None)
Quarter: 2006Q3

REPORT INFORMATION
  Report Type: 
  Country: None (occurrence: None)
  Receive Date: 20060921
  Receipt Date: 20060906
  Transmission Date: 20061208
  Serious: Yes (Hospitalization)
  Sender: FDA-Public Use
  Company Number: 06-NIP00133

PATIENT
  Age: 6 Year
  Sex: Male
  Weight: 18.8 kg

DRUGS (16)
  1. NIPENT [Suspect]
     Indication: GRAFT VERSUS HOST DISEASE
     Dosage: 0.1071 MG (1.5 MG, EVERY 2 WEEKS), INTRAVENOUS
     Route: 042
     Dates: start: 20060613
  2. PREDNISONE (PREDNISONE) (PREDNISONE) [Concomitant]
  3. TACRO [Concomitant]
  4. SEPTRA (SULFAMETHOXAZOLE, TRIMETHOPRIM) (SULFAMETHOXAZOLE, TRIMETHOPRI [Concomitant]
  5. HYDROXIZME [Concomitant]
  6. CELLCEPT (MYCOPHENOLATE MOFETIL) (MYCOPHENOLATE MOFETIL) [Concomitant]
  7. CARAFATE (SUCRALFATE) (SUCRALFATE) [Concomitant]
  8. ZOFRAN (ONDANSETRON HYDROHCLORIDE) (ONDANSETRON HYDROCHLORIDE) [Concomitant]
  9. MAGNESIUM (MAGNESIUM) (TABLETS) (MAGNESIUM) [Concomitant]
  10. PREVACID (LANSOPRAZOLE) (LANSOPRAZOLE) [Concomitant]
  11. NORVASC [Concomitant]
  12. PENICILLIN [Concomitant]
  13. VALGANCYCLOVIR [Concomitant]
  14. CLOTRIMAZOLE (CLOTRIMAZOLE) (TROCHE) (CLOTRIMAZOLE) [Concomitant]
  15. FLUCONAZOLE (FLUCONAZOLE) (FLUCONAZOLE) [Concomitant]
  16. TRIAMCINOLONE (TRIAMCINOLONE) (CREAM) (TRIAMCINOLONE) [Concomitant]

REACTIONS (3)
  - EYE SWELLING [None]
  - OEDEMA PERIPHERAL [None]
  - SWOLLEN TONGUE [None]
